FAERS Safety Report 7668403-X (Version None)
Quarter: 2011Q3

REPORT INFORMATION
  Report Type: 
  Country: None (occurrence: None)
  Receive Date: 20110808
  Receipt Date: 20110725
  Transmission Date: 20111222
  Serious: Yes (Hospitalization)
  Sender: FDA-Public Use
  Company Number: US-ELI_LILLY_AND_COMPANY-US201103006518

PATIENT
  Sex: Female

DRUGS (1)
  1. FORTEO [Suspect]
     Indication: OSTEOPOROSIS
     Dosage: UNK, UNKNOWN
     Route: 065

REACTIONS (7)
  - ANXIETY [None]
  - PAIN [None]
  - HEADACHE [None]
  - SPINAL FUSION SURGERY [None]
  - IRRITABLE BOWEL SYNDROME [None]
  - INFLUENZA [None]
  - NAUSEA [None]
